FAERS Safety Report 25653366 (Version 2)
Quarter: 2025Q3

REPORT INFORMATION
  Report Type: Spontaneous
  Country: US (occurrence: US)
  Receive Date: 20250807
  Receipt Date: 20250822
  Transmission Date: 20251021
  Serious: Yes (Disabling, Other)
  Sender: AMGEN
  Company Number: US-AMGEN-USASP2025154050

PATIENT
  Sex: Female
  Weight: 93.2 kg

DRUGS (40)
  1. TEPEZZA [Suspect]
     Active Substance: TEPROTUMUMAB-TRBW
     Indication: Endocrine ophthalmopathy
     Dosage: 930 MILLIGRAM, Q3WK, (FIRST INFUSION)
     Route: 040
     Dates: start: 20211220
  2. TEPEZZA [Suspect]
     Active Substance: TEPROTUMUMAB-TRBW
     Indication: Graves^ disease
     Dosage: 1860 MILLIGRAM, Q3WK, (UNKNOWN INFUSION)
     Route: 040
     Dates: start: 20220126
  3. TEPEZZA [Suspect]
     Active Substance: TEPROTUMUMAB-TRBW
     Dosage: 1860 MILLIGRAM, Q3WK, (UNKNOWN INFUSION)
     Route: 040
     Dates: start: 20220216
  4. TEPEZZA [Suspect]
     Active Substance: TEPROTUMUMAB-TRBW
     Route: 040
     Dates: start: 20220309
  5. TEPEZZA [Suspect]
     Active Substance: TEPROTUMUMAB-TRBW
     Route: 040
  6. TEPEZZA [Suspect]
     Active Substance: TEPROTUMUMAB-TRBW
     Dosage: 1860 MILLIGRAM, Q3WK, (UNKNOWN INFUSION)
     Route: 040
     Dates: start: 20220401
  7. TEPEZZA [Suspect]
     Active Substance: TEPROTUMUMAB-TRBW
     Route: 040
     Dates: start: 20220420, end: 20220420
  8. LEVOTHYROXINE [Concomitant]
     Active Substance: LEVOTHYROXINE
     Dosage: 125 MICROGRAM, QD
     Route: 048
  9. SELENIUM [Concomitant]
     Active Substance: SELENIUM
     Indication: Migraine
     Route: 065
  10. RESTASIS [Concomitant]
     Active Substance: CYCLOSPORINE
     Dosage: UNK UNK, BID
     Route: 047
  11. Artificial tears [Concomitant]
     Dosage: UNK UNK, QD
     Route: 048
  12. ALUMINUM CHLORIDE [Concomitant]
     Active Substance: ALUMINUM CHLORIDE
     Dosage: UNK UNK, QD
     Route: 065
  13. ARIPIPRAZOLE [Concomitant]
     Active Substance: ARIPIPRAZOLE
     Dosage: 30 MILLIGRAM, QD
     Route: 048
  14. POVIDONE [Concomitant]
     Active Substance: POVIDONE
     Indication: Dry eye
     Dosage: UNK UNK, QID
     Route: 047
  15. AZELASTINE [Concomitant]
     Active Substance: AZELASTINE
     Dosage: 137 MICROGRAM, BID
     Route: 045
  16. CETIRIZINE HCL [Concomitant]
     Active Substance: CETIRIZINE HYDROCHLORIDE
     Dosage: 10 MILLIGRAM, BID
     Route: 048
  17. CHLORHEXIDINE GLUCONATE [Concomitant]
     Active Substance: CHLORHEXIDINE GLUCONATE
     Dosage: UNK UNK, BID
     Route: 048
  18. CLINDAMYCIN [Concomitant]
     Active Substance: CLINDAMYCIN
     Dosage: UNK UNK, QD
     Route: 065
  19. CYCLOSPORINE [Concomitant]
     Active Substance: CYCLOSPORINE
     Dosage: UNK UNK, Q12H
     Route: 047
  20. DICLOFENAC [Concomitant]
     Active Substance: DICLOFENAC
     Dosage: 16 GRAM, QID
     Route: 048
  21. EPINEPHRINE [Concomitant]
     Active Substance: EPINEPHRINE
     Route: 030
  22. FAMOTIDINE [Concomitant]
     Active Substance: FAMOTIDINE
     Dosage: 20 MILLIGRAM, BID
     Route: 048
  23. GABAPENTIN [Concomitant]
     Active Substance: GABAPENTIN
     Indication: Pain
     Dosage: 300 MILLIGRAM, QD
     Route: 048
  24. HYDROCORTISONE [Concomitant]
     Active Substance: HYDROCORTISONE
     Dosage: UNK UNK, TID
     Route: 061
  25. HYDROQUINONE [Concomitant]
     Active Substance: HYDROQUINONE
     Route: 065
  26. HYDROXYZINE HYDROCHLORIDE [Concomitant]
     Active Substance: HYDROXYZINE HYDROCHLORIDE
     Route: 048
  27. KETOTIFEN [Concomitant]
     Active Substance: KETOTIFEN
     Dosage: UNK UNK, BID
     Route: 047
  28. SYNTHROID [Concomitant]
     Active Substance: LEVOTHYROXINE SODIUM
     Route: 048
  29. MELATONIN [Concomitant]
     Active Substance: MELATONIN
     Route: 048
  30. MONTELUKAST [Concomitant]
     Active Substance: MONTELUKAST
     Route: 048
  31. OXYBUTYNIN CHLORIDE [Concomitant]
     Active Substance: OXYBUTYNIN CHLORIDE
     Dosage: 5 MILLIGRAM, QD
     Route: 048
  32. TRETINOIN [Concomitant]
     Active Substance: TRETINOIN
     Route: 065
  33. ALBUTEROL [Concomitant]
     Active Substance: ALBUTEROL
     Dosage: 137 MICROGRAM, QID
     Route: 048
  34. BENZOYL PEROXIDE [Concomitant]
     Active Substance: BENZOYL PEROXIDE
     Dosage: UNK UNK, QD
     Route: 048
  35. CAMPHOR [Concomitant]
     Active Substance: CAMPHOR
     Dosage: UNK UNK, QD
     Route: 065
  36. CARBOXYMETHYLCELLULOSE [Concomitant]
     Active Substance: CARBOXYMETHYLCELLULOSE
     Dosage: UNK UNK, QID
     Route: 047
  37. Cholecalcifer eg [Concomitant]
     Indication: Vitamin D deficiency
     Dosage: 50 MILLIGRAM, QD
  38. MAGNESIUM OXIDE [Concomitant]
     Active Substance: MAGNESIUM OXIDE
     Dosage: 400 MILLIGRAM, QD
     Route: 048
  39. MUPIROCIN [Concomitant]
     Active Substance: MUPIROCIN
     Dosage: UNK UNK, BID
     Route: 065
  40. MELOXICAM [Concomitant]
     Active Substance: MELOXICAM
     Indication: Arthralgia
     Route: 065

REACTIONS (29)
  - Deafness permanent [Not Recovered/Not Resolved]
  - Endocrine ophthalmopathy [Unknown]
  - Graves^ disease [Unknown]
  - Emotional distress [Unknown]
  - Anxiety [Unknown]
  - Discomfort [Unknown]
  - Tinnitus [Not Recovered/Not Resolved]
  - Pain [Unknown]
  - Impaired quality of life [Unknown]
  - Flatulence [Unknown]
  - Pain in extremity [Unknown]
  - Flank pain [Unknown]
  - Neck pain [Unknown]
  - Arthritis [Unknown]
  - Skin discolouration [Unknown]
  - Joint stiffness [Unknown]
  - Product use complaint [Unknown]
  - Increased appetite [Unknown]
  - Polyuria [Unknown]
  - Joint swelling [Unknown]
  - Thirst [Unknown]
  - Back pain [Unknown]
  - Oedema [Unknown]
  - Nausea [Unknown]
  - Muscle spasms [Unknown]
  - Dry skin [Unknown]
  - Headache [Unknown]
  - Diarrhoea [Recovered/Resolved]
  - Autophony [Recovered/Resolved]
